FAERS Safety Report 9534658 (Version 1)
Quarter: 2013Q3

REPORT INFORMATION
  Report Type: Spontaneous
  Country: IT (occurrence: IT)
  Receive Date: 20130918
  Receipt Date: 20130918
  Transmission Date: 20140515
  Serious: Yes (Other)
  Sender: FDA-Public Use
  Company Number: IT-TEVA-432363ISR

PATIENT
  Age: 67 Year
  Sex: Female

DRUGS (2)
  1. METFORMINA CLORIDRATO [Suspect]
     Dosage: 1000 MILLIGRAM DAILY;
     Route: 048
     Dates: start: 20130101, end: 20130809
  2. LEVOFLOXACINA [Interacting]
     Dosage: 500 MILLIGRAM DAILY;
     Route: 048
     Dates: start: 20130802, end: 20130809

REACTIONS (2)
  - Diabetes mellitus inadequate control [Recovering/Resolving]
  - Drug interaction [Unknown]
